FAERS Safety Report 18173433 (Version 3)
Quarter: 2020Q4

REPORT INFORMATION
  Report Type: Report from Study
  Country: US (occurrence: US)
  Receive Date: 20200820
  Receipt Date: 20201019
  Transmission Date: 20210113
  Serious: Yes (Other)
  Sender: FDA-Public Use
  Company Number: NVSC2020US229006

PATIENT
  Sex: Male
  Weight: 61 kg

DRUGS (2)
  1. KYMRIAH [Suspect]
     Active Substance: TISAGENLECLEUCEL
     Indication: ACUTE LYMPHOCYTIC LEUKAEMIA
     Dosage: 16 ML, ONCE/SINGLE
     Route: 042
     Dates: start: 20200727, end: 20200727
  2. KYMRIAH [Suspect]
     Active Substance: TISAGENLECLEUCEL
     Indication: ACUTE LYMPHOCYTIC LEUKAEMIA

REACTIONS (4)
  - Cytokine release syndrome [Recovering/Resolving]
  - Platelet count decreased [Unknown]
  - Pain [Recovering/Resolving]
  - Acute lymphocytic leukaemia recurrent [Unknown]
